FAERS Safety Report 10547306 (Version 13)
Quarter: 2017Q1

REPORT INFORMATION
  Report Type: Spontaneous
  Country: CA (occurrence: CA)
  Receive Date: 20141028
  Receipt Date: 20170117
  Transmission Date: 20170428
  Serious: Yes (Hospitalization, Other)
  Sender: FDA-Public Use
  Company Number: CA-ROCHE-1479164

PATIENT
  Age: 66 Year
  Sex: Female
  Weight: 84 kg

DRUGS (4)
  1. XOLAIR [Suspect]
     Active Substance: OMALIZUMAB
     Route: 058
     Dates: start: 20161123
  2. XOLAIR [Suspect]
     Active Substance: OMALIZUMAB
     Indication: ASTHMA
     Route: 058
     Dates: start: 20140205
  3. XOLAIR [Suspect]
     Active Substance: OMALIZUMAB
     Route: 058
     Dates: start: 20140305
  4. AVELOX [Suspect]
     Active Substance: MOXIFLOXACIN HYDROCHLORIDE
     Indication: SINUSITIS
     Route: 065

REACTIONS (28)
  - Cardiomegaly [Unknown]
  - Arthralgia [Unknown]
  - Nasal dryness [Unknown]
  - Sleep apnoea syndrome [Unknown]
  - Cardiac disorder [Unknown]
  - Fall [Unknown]
  - Hypersensitivity [Unknown]
  - Joint dislocation [Unknown]
  - Dyspnoea [Unknown]
  - Fatigue [Unknown]
  - Asthma [Unknown]
  - Lower respiratory tract infection [Unknown]
  - Wheezing [Unknown]
  - Fluid retention [Unknown]
  - Bronchitis [Unknown]
  - Sinusitis [Unknown]
  - Obstructive airways disorder [Unknown]
  - Increased bronchial secretion [Unknown]
  - Weight decreased [Unknown]
  - Hiatus hernia [Unknown]
  - Vascular occlusion [Unknown]
  - Cough [Recovered/Resolved]
  - Forced expiratory volume decreased [Unknown]
  - Epistaxis [Unknown]
  - Upper limb fracture [Unknown]
  - Pneumonia [Recovered/Resolved]
  - Panic attack [Unknown]
  - Heart rate irregular [Unknown]

NARRATIVE: CASE EVENT DATE: 20140205
